FAERS Safety Report 19929580 (Version 1)
Quarter: 2021Q4

REPORT INFORMATION
  Report Type: Spontaneous
  Country: CA (occurrence: CA)
  Receive Date: 20211007
  Receipt Date: 20211007
  Transmission Date: 20220303
  Serious: Yes (Other)
  Sender: FDA-Public Use
  Company Number: CA-PFIZER INC-202101281414

PATIENT
  Sex: Female

DRUGS (1)
  1. DILANTIN [Suspect]
     Active Substance: PHENYTOIN
     Dosage: 360 MG, DAILY(100 MG THREE TIMES A DAY AND 30 MG ONE IN THE MORNING AND ONE BEFORE BEDTIME)

REACTIONS (7)
  - Ear infection [Unknown]
  - Weight decreased [Unknown]
  - Tinnitus [Unknown]
  - Illness [Unknown]
  - Poor quality product administered [Unknown]
  - Product formulation issue [Unknown]
  - Product taste abnormal [Unknown]
